FAERS Safety Report 4492243-6 (Version None)
Quarter: 2004Q4

REPORT INFORMATION
  Report Type: 
  Country: None (occurrence: None)
  Receive Date: 20041103
  Receipt Date: 20041028
  Transmission Date: 20050328
  Serious: Yes (Hospitalization)
  Sender: FDA-Public Use
  Company Number: IT-MERCK-0410ITA00061

PATIENT
  Age: 70 Year
  Sex: Male

DRUGS (1)
  1. VIOXX [Suspect]
     Indication: OSTEOARTHRITIS
     Route: 048
     Dates: start: 20000824, end: 20040630

REACTIONS (7)
  - ARTERIAL STENOSIS [None]
  - ATHEROSCLEROSIS [None]
  - CAROTID ARTERY OCCLUSION [None]
  - HYPERHIDROSIS [None]
  - ISCHAEMIC CARDIOMYOPATHY [None]
  - LOSS OF CONSCIOUSNESS [None]
  - MALAISE [None]
